FAERS Safety Report 10271423 (Version 5)
Quarter: 2024Q3

REPORT INFORMATION
  Report Type: Report from Study
  Country: JP (occurrence: JP)
  Receive Date: 20140701
  Receipt Date: 20240908
  Transmission Date: 20241017
  Serious: Yes (Other)
  Sender: BRISTOL MYERS SQUIBB
  Company Number: JP-BRISTOL-MYERS SQUIBB COMPANY-21151998

PATIENT
  Age: 73 Year
  Sex: Male
  Weight: 92 kg

DRUGS (7)
  1. SPRYCEL [Suspect]
     Active Substance: DASATINIB
     Indication: Chronic myeloid leukaemia
     Dosage: 100 MG, QD
     Route: 048
     Dates: start: 20110712, end: 20130421
  2. LASIX [Concomitant]
     Active Substance: FUROSEMIDE
     Indication: Hypertension
     Dosage: 20 MG, QD
     Route: 048
     Dates: start: 20110712
  3. CALONAL [Concomitant]
     Active Substance: ACETAMINOPHEN
     Indication: Product used for unknown indication
     Dosage: 4 DF, BID
     Route: 048
  4. LAFUTIDINE [Concomitant]
     Active Substance: LAFUTIDINE
     Indication: Product used for unknown indication
     Dosage: 2 DF, BID
     Route: 048
  5. SPIRONOLACTONE [Concomitant]
     Active Substance: SPIRONOLACTONE
     Indication: Chronic myeloid leukaemia
     Dosage: UNK
  6. SPIRONOLACTONE [Concomitant]
     Active Substance: SPIRONOLACTONE
     Indication: Hypertension
     Dates: start: 2007
  7. NORVASC [Concomitant]
     Active Substance: AMLODIPINE BESYLATE
     Indication: Hypertension
     Dosage: UNK

REACTIONS (1)
  - Chylothorax [Recovering/Resolving]

NARRATIVE: CASE EVENT DATE: 20130213
